FAERS Safety Report 4616380-8 (Version None)
Quarter: 2005Q1

REPORT INFORMATION
  Report Type: 
  Country: None (occurrence: None)
  Receive Date: 20050321
  Receipt Date: 20050310
  Transmission Date: 20050727
  Serious: Yes (Hospitalization)
  Sender: FDA-Public Use
  Company Number: 2005US-00487

PATIENT
  Age: 24 Year
  Sex: Female
  Weight: 56.7 kg

DRUGS (3)
  1. ISOTRETINOIN [Suspect]
     Indication: ACNE
     Dosage: ORAL
     Route: 048
     Dates: start: 20041113, end: 20041115
  2. TRI-LEVELEN [Concomitant]
  3. CLARAVIS [Concomitant]

REACTIONS (4)
  - EMBOLISM VENOUS [None]
  - SKIN DISCOLOURATION [None]
  - SWELLING [None]
  - THORACIC OUTLET SYNDROME [None]
